FAERS Safety Report 7014931-X (Version None)
Quarter: 2010Q3

REPORT INFORMATION
  Report Type: 
  Country: None (occurrence: None)
  Receive Date: 20100927
  Receipt Date: 20100208
  Transmission Date: 20110219
  Serious: Yes (Other)
  Sender: FDA-Public Use
  Company Number: US-ASTRAZENECA-2010SE05570

PATIENT
  Age: 50 Year
  Sex: Female

DRUGS (1)
  1. ARIMIDEX [Suspect]
     Indication: BREAST CANCER
     Route: 048
     Dates: start: 20091201, end: 20091201

REACTIONS (5)
  - ARTHRALGIA [None]
  - BACK PAIN [None]
  - BREAST CANCER RECURRENT [None]
  - METASTASES TO BONE [None]
  - OEDEMA PERIPHERAL [None]
